FAERS Safety Report 8728724 (Version 2)
Quarter: 2012Q4

REPORT INFORMATION
  Report Type: 
  Country: JP (occurrence: JP)
  Receive Date: 20120817
  Receipt Date: 20121031
  Transmission Date: 20130627
  Serious: Yes (Hospitalization)
  Sender: FDA-Public Use
  Company Number: PHHY2012JP069691

PATIENT
  Age: 47 Year
  Sex: Female

DRUGS (6)
  1. FAMVIR [Suspect]
     Indication: HERPES ZOSTER
     Dosage: 500 mg, TID
     Route: 048
     Dates: start: 20120522, end: 20120528
  2. FAMVIR [Suspect]
     Dosage: 500 mg, TID
     Route: 048
     Dates: start: 20120530, end: 20120530
  3. METHYCOBAL [Concomitant]
     Dosage: 1500 ug,
     Route: 048
     Dates: start: 20120522
  4. CALONAL [Concomitant]
     Dosage: 900 mg
     Route: 048
     Dates: start: 20120522
  5. MUCOSTA [Concomitant]
     Dosage: 300
     Route: 048
     Dates: start: 20120522
  6. AZUNOL [Concomitant]
     Route: 061
     Dates: start: 20120522

REACTIONS (6)
  - Musculoskeletal stiffness [Recovered/Resolved]
  - Decreased appetite [Recovered/Resolved]
  - Pyrexia [Unknown]
  - Headache [Recovered/Resolved]
  - Nausea [Recovered/Resolved]
  - Dizziness [Recovered/Resolved]
